FAERS Safety Report 6136849-7 (Version None)
Quarter: 2009Q1

REPORT INFORMATION
  Report Type: 
  Country: None (occurrence: None)
  Receive Date: 20090330
  Receipt Date: 20090317
  Transmission Date: 20090719
  Serious: Yes (Hospitalization, Disabling, Other)
  Sender: FDA-Public Use
  Company Number: US-ELI_LILLY_AND_COMPANY-US200806002490

PATIENT
  Sex: Female

DRUGS (38)
  1. FORTEO [Suspect]
     Indication: OSTEOPOROSIS
     Dosage: UNK, UNK
     Dates: start: 20080502, end: 20080601
  2. FORTEO [Suspect]
     Dosage: UNK, UNK
     Dates: start: 20080601
  3. FORTEO [Suspect]
     Dates: start: 20081101
  4. FORTEO [Suspect]
  5. TYLENOL                                 /SCH/ [Concomitant]
     Dosage: 1000 MG, 2/D
  6. NEXIUM [Concomitant]
     Dosage: 40 MG, 2/D
  7. GLUCOTROL [Concomitant]
     Dosage: 10 MG, EACH MORNING
  8. GLUCOTROL [Concomitant]
     Dosage: 5 MG, EACH MORNING
  9. GLUCOPHAGE [Concomitant]
     Dosage: 500 MG, 2/D
  10. LENOXIN [Concomitant]
     Dosage: 0.125 MG, DAILY (1/D)
  11. ALTACE [Concomitant]
  12. IPRATROPIUM BROMIDE [Concomitant]
  13. MIRALAX [Concomitant]
     Dosage: 17 G, DAILY (1/D)
  14. METAMUCIL [Concomitant]
     Dosage: 17 MG, DAILY (1/D)
  15. SULFACETAMIDE [Concomitant]
     Dosage: UNK, 2/D
  16. NEOMYCIN SULF/POLYMYXIN B SULF/DEXAMETHASONE [Concomitant]
     Dosage: UNK, AS NEEDED
  17. HYPOTEARS DDPF [Concomitant]
  18. ASMANEX TWISTHALER [Concomitant]
     Dosage: UNK, 2/D
  19. XOPENEX [Concomitant]
     Dosage: UNK, 3/D
  20. CARDIZEM SR [Concomitant]
     Dosage: 120 MG, 2/D
  21. LISINOPRIL [Concomitant]
     Dosage: 10 MG, 2/D
  22. IMDUR [Concomitant]
     Dosage: 30 MG, DAILY (1/D)
  23. LASIX [Concomitant]
     Dosage: 40 MG, DAILY (1/D)
  24. XANAX [Concomitant]
     Dosage: 0.125 MG, UNK
  25. ASPIRIN [Concomitant]
     Dosage: 162 MG, DAILY (1/D)
  26. SIMVASTATIN [Concomitant]
     Dosage: 10 MG, DAILY (1/D)
  27. NITROGLYCERIN [Concomitant]
     Dosage: 0.4 MG, AS NEEDED
  28. ATROVENT [Concomitant]
     Dosage: UNK, 2/D
  29. SINGULAIR [Concomitant]
     Dosage: 10 MG, DAILY (1/D)
  30. MYCELEX [Concomitant]
  31. CENTRUM [Concomitant]
     Dosage: UNK, DAILY (1/D)
  32. CALCIUM CARBONATE [Concomitant]
     Dosage: 500 MG, 2/D
  33. ERGOCALCIFEROL [Concomitant]
     Dosage: 125 MG, 2/D
  34. ASCORBIC ACID [Concomitant]
     Dosage: 500 MG, 2/D
  35. VITAMIN E [Concomitant]
     Dosage: 400 IU, DAILY (1/D)
  36. GARLIC [Concomitant]
     Dosage: 167 MG, DAILY (1/D)
  37. FISH OIL [Concomitant]
     Dosage: 1000 MG, 2/D
  38. CRANBERRY [Concomitant]
     Dosage: 1680 MG, DAILY (1/D)

REACTIONS (13)
  - BACK PAIN [None]
  - BONE PAIN [None]
  - DISABILITY [None]
  - FEELING ABNORMAL [None]
  - MOVEMENT DISORDER [None]
  - MUSCLE SPASMS [None]
  - NERVOUSNESS [None]
  - OEDEMA PERIPHERAL [None]
  - PAIN [None]
  - PROCEDURAL COMPLICATION [None]
  - SPINAL COLUMN STENOSIS [None]
  - URINARY TRACT INFECTION [None]
  - WOUND [None]
